FAERS Safety Report 4752109-0 (Version None)
Quarter: 2005Q3

REPORT INFORMATION
  Report Type: 
  Country: None (occurrence: None)
  Receive Date: 20050824
  Receipt Date: 20050824
  Transmission Date: 20060218
  Serious: Yes (Other)
  Sender: FDA-Public Use
  Company Number: None

PATIENT
  Age: 47 Year
  Sex: Male
  Weight: 104.1 kg

DRUGS (5)
  1. RISPERIDONE [Suspect]
     Indication: HALLUCINATION
     Dosage: 4-6MG  DAILY PO
     Route: 048
     Dates: start: 20041201
  2. SERTRALINE HCL [Concomitant]
  3. TRAZODONE [Concomitant]
  4. BUSPIRONE HCL [Concomitant]
  5. LEVOTHYROXINE SODIUM [Concomitant]

REACTIONS (2)
  - BLOOD PROINSULIN INCREASED [None]
  - GLYCOSYLATED HAEMOGLOBIN INCREASED [None]
